FAERS Safety Report 4376117-7 (Version None)
Quarter: 2004Q2

REPORT INFORMATION
  Report Type: 
  Country: None (occurrence: None)
  Receive Date: 20040609
  Receipt Date: 20040609
  Transmission Date: 20050107
  Serious: No
  Sender: FDA-Public Use
  Company Number: None

PATIENT
  Age: 58 Year
  Sex: Male

DRUGS (3)
  1. MORPHINE SUL INJ [Suspect]
     Indication: POST PROCEDURAL PAIN
     Dosage: 5MG IV P
     Route: 042
  2. MORPHINE [Suspect]
     Indication: POST PROCEDURAL PAIN
     Dosage: PCA DRIP: 1MG Q 5 MIN MAX 12 MG
  3. DIAZEPAM [Suspect]
     Indication: POST PROCEDURAL PAIN
     Dosage: 5-10 MG IV Q 4-6 P
     Route: 042

REACTIONS (2)
  - OXYGEN SATURATION DECREASED [None]
  - SOMNOLENCE [None]
